FAERS Safety Report 15155619 (Version 1)
Quarter: 2018Q3

REPORT INFORMATION
  Report Type: Report from Study
  Country: US (occurrence: US)
  Receive Date: 20180717
  Receipt Date: 20180717
  Transmission Date: 20181010
  Serious: Yes (Hospitalization)
  Sender: FDA-Public Use
  Company Number: US-SEATTLE GENETICS-2018SGN01618

PATIENT
  Age: 49 Year
  Sex: Female

DRUGS (1)
  1. BRENTUXIMAB VEDOTIN [Suspect]
     Active Substance: BRENTUXIMAB VEDOTIN
     Indication: HODGKIN^S DISEASE
     Route: 065

REACTIONS (3)
  - Renal failure [Unknown]
  - Abdominal pain [Unknown]
  - Colon operation [Unknown]

NARRATIVE: CASE EVENT DATE: 20180710
